FAERS Safety Report 9424229 (Version 1)
Quarter: 2013Q3

REPORT INFORMATION
  Report Type: Spontaneous
  Country: FR (occurrence: FR)
  Receive Date: 20130729
  Receipt Date: 20130729
  Transmission Date: 20140515
  Serious: Yes (Hospitalization)
  Sender: FDA-Public Use
  Company Number: FR-ACCORD-018535

PATIENT
  Age: 71 Year
  Sex: Male

DRUGS (11)
  1. ETOPOSIDE [Suspect]
     Indication: SMALL CELL LUNG CANCER
     Route: 042
     Dates: start: 201112, end: 2012
  2. TAHOR [Concomitant]
  3. CISPLATYL [Suspect]
     Indication: SMALL CELL LUNG CANCER
     Dosage: ONE INFUSION PER COURSE
     Route: 042
     Dates: start: 201112, end: 2012
  4. GLUCOPHAGE [Concomitant]
  5. ENDOXAN [Suspect]
     Indication: SMALL CELL LUNG CANCER
     Dosage: ONE INFUSION PER COURSE. 5 ADMINISTRATIONS D1=D21
     Route: 042
     Dates: start: 201210, end: 20130131
  6. TRIATEC [Concomitant]
  7. DOXORUBICIN [Suspect]
     Indication: SMALL CELL LUNG CANCER
     Dosage: 1 INFUSION PER COURSE. 5 ADMINISTRATIONS D1=D21
     Route: 042
     Dates: start: 201210, end: 20130131
  8. INEXIUM [Concomitant]
  9. ASPEGIC [Concomitant]
  10. CAMPTO [Suspect]
     Indication: SMALL CELL LUNG CANCER
     Dosage: ONE INFUSION PER COURSE
     Route: 042
     Dates: start: 201207, end: 201210
  11. CARBOPLATIN [Suspect]
     Indication: SMALL CELL LUNG CANCER
     Dosage: ONE INFUSION PER COURSE
     Route: 042
     Dates: start: 201207, end: 201210

REACTIONS (1)
  - Progressive multifocal leukoencephalopathy [Recovering/Resolving]
